FAERS Safety Report 10406895 (Version 1)
Quarter: 2014Q3

REPORT INFORMATION
  Report Type: Spontaneous
  Country: US (occurrence: US)
  Receive Date: 20140825
  Receipt Date: 20140825
  Transmission Date: 20150326
  Serious: No
  Sender: FDA-Public Use
  Company Number: US-009507513-1408USA008097

PATIENT
  Age: 25 Year
  Sex: Female
  Weight: 45.35 kg

DRUGS (1)
  1. NEXPLANON [Suspect]
     Active Substance: ETONOGESTREL
     Indication: CONTRACEPTION
     Dosage: UNK
     Route: 058
     Dates: start: 20130214

REACTIONS (3)
  - Haemorrhage [Not Recovered/Not Resolved]
  - Weight decreased [Unknown]
  - Implant site pruritus [Unknown]

NARRATIVE: CASE EVENT DATE: 20130214
